FAERS Safety Report 22243351 (Version 1)
Quarter: 2023Q2

REPORT INFORMATION
  Report Type: Spontaneous
  Country: US (occurrence: US)
  Receive Date: 20230424
  Receipt Date: 20230424
  Transmission Date: 20230722
  Serious: No
  Sender: FDA-Public Use
  Company Number: US-BRISTOL-MYERS SQUIBB COMPANY-2023-058298

PATIENT
  Sex: Female

DRUGS (1)
  1. OPDIVO [Suspect]
     Active Substance: NIVOLUMAB
     Indication: Plasma cell myeloma recurrent
     Dosage: UNSPECIFIED DOSE AND FREQUENCY
     Dates: start: 20230420

REACTIONS (3)
  - Fatigue [Unknown]
  - Dizziness [Unknown]
  - Alopecia [Unknown]

NARRATIVE: CASE EVENT DATE: 20230421
